FAERS Safety Report 24906551 (Version 3)
Quarter: 2025Q1

REPORT INFORMATION
  Report Type: Spontaneous
  Country: GR (occurrence: GR)
  Receive Date: 20250130
  Receipt Date: 20250331
  Transmission Date: 20250408
  Serious: No
  Sender: PFIZER
  Company Number: GR-PFIZER INC-PV202500009340

PATIENT
  Age: 10 Year
  Sex: Female
  Weight: 27 kg

DRUGS (2)
  1. GENOTROPIN [Suspect]
     Active Substance: SOMATROPIN
     Indication: Growth hormone deficiency
     Dosage: 1.2 MG, ALTERNATE DAY (ALTERNATING WITH 1MG) 2 DAYS OFF PER WEEK (WEDNESDAY/SUNDAY)
     Route: 058
     Dates: start: 202409
  2. GENOTROPIN [Suspect]
     Active Substance: SOMATROPIN
     Dosage: 1 MG, ALTERNATE DAY (ALTERNATING WITH 1.2 MG) 2 DAYS OFF PER WEEK (WEDNESDAY/SUNDAY)
     Route: 058
     Dates: start: 202409

REACTIONS (3)
  - Device use error [Unknown]
  - Device breakage [Unknown]
  - Device material issue [Unknown]

NARRATIVE: CASE EVENT DATE: 20250121
